FAERS Safety Report 25684168 (Version 1)
Quarter: 2025Q3

REPORT INFORMATION
  Report Type: Spontaneous
  Country: CN (occurrence: CN)
  Receive Date: 20250815
  Receipt Date: 20250815
  Transmission Date: 20251020
  Serious: Yes (Hospitalization)
  Sender: ALEXION PHARMACEUTICALS
  Company Number: CN-ASTRAZENECA-202508CHN009809CN

PATIENT
  Age: 74 Year
  Sex: Male
  Weight: 65 kg

DRUGS (2)
  1. IMFINZI [Suspect]
     Active Substance: DURVALUMAB
     Dosage: 1000 MILLIGRAM, QD
     Dates: start: 20250704, end: 20250704
  2. ETOPOSIDE [Suspect]
     Active Substance: ETOPOSIDE
     Dosage: 140 MILLIGRAM, QD
     Dates: start: 20250704, end: 20250706

REACTIONS (2)
  - Granulocyte count decreased [Recovering/Resolving]
  - Infection [Recovering/Resolving]

NARRATIVE: CASE EVENT DATE: 20250716
